FAERS Safety Report 9596351 (Version 2)
Quarter: 2013Q4

REPORT INFORMATION
  Report Type: Spontaneous
  Country: JP (occurrence: JP)
  Receive Date: 20131004
  Receipt Date: 20131016
  Transmission Date: 20140711
  Serious: No
  Sender: FDA-Public Use
  Company Number: JP-PFIZER INC-2013282665

PATIENT
  Age: 25 Year
  Sex: Male

DRUGS (2)
  1. GABAPEN [Suspect]
     Dosage: 800 MG, DAILY
     Route: 048
     Dates: start: 201201
  2. DEPAKENE [Concomitant]
     Dosage: 400 MG, DAILY
     Route: 048
     Dates: start: 201201

REACTIONS (2)
  - Therapeutic response decreased [Recovered/Resolved]
  - Rhinitis [Unknown]
